FAERS Safety Report 14305112 (Version 1)
Quarter: 2017Q4

REPORT INFORMATION
  Report Type: Spontaneous
  Country: JP (occurrence: JP)
  Receive Date: 20171219
  Receipt Date: 20171219
  Transmission Date: 20180321
  Serious: Yes (Death, Other)
  Sender: FDA-Public Use
  Company Number: JP-OTSUKA-005537

PATIENT
  Age: 33 Year
  Sex: Male
  Weight: 132 kg

DRUGS (7)
  1. ABILIFY [Suspect]
     Active Substance: ARIPIPRAZOLE
     Indication: SCHIZOPHRENIA
     Dosage: UNK
     Route: 048
     Dates: start: 200610
  2. HIRNAMIN [Concomitant]
     Active Substance: PHENOTHIAZINE
     Indication: PRODUCT USED FOR UNKNOWN INDICATION
     Dosage: 100 MG, QD
     Route: 048
     Dates: start: 20061015, end: 20090123
  3. ABILIFY [Suspect]
     Active Substance: ARIPIPRAZOLE
     Dosage: 12-24 MG, DAILY DOSE
     Route: 048
     Dates: start: 200812, end: 20090123
  4. LUDIOMIL [Concomitant]
     Active Substance: MAPROTILINE HYDROCHLORIDE
     Indication: PRODUCT USED FOR UNKNOWN INDICATION
     Dosage: 100 MG, QD
     Route: 048
     Dates: start: 20061015, end: 20090123
  5. EXCEGRAN [Concomitant]
     Active Substance: ZONISAMIDE
     Indication: PRODUCT USED FOR UNKNOWN INDICATION
     Dosage: 400 MG, QD
     Route: 048
     Dates: start: 20061015, end: 20090123
  6. LEXOTAN [Concomitant]
     Active Substance: BROMAZEPAM
     Indication: PRODUCT USED FOR UNKNOWN INDICATION
     Dosage: 10 MG, QD
     Route: 048
     Dates: start: 20061015, end: 20090123
  7. ROHYPNOL NET [Concomitant]
     Indication: PRODUCT USED FOR UNKNOWN INDICATION
     Dosage: 2 MG, QD
     Route: 048
     Dates: start: 20061015, end: 20090123

REACTIONS (3)
  - Pharyngeal oedema [Unknown]
  - Weight increased [Unknown]
  - Sudden death [Fatal]

NARRATIVE: CASE EVENT DATE: 20090123
